FAERS Safety Report 7028527-7 (Version None)
Quarter: 2010Q3

REPORT INFORMATION
  Report Type: 
  Country: None (occurrence: None)
  Receive Date: 20100920
  Receipt Date: 20100503
  Transmission Date: 20110219
  Serious: Yes (Death, Hospitalization, Other)
  Sender: FDA-Public Use
  Company Number: 2010034435

PATIENT
  Age: 68 Year
  Sex: Male

DRUGS (5)
  1. DILANTIN-125 [Suspect]
     Indication: CONVULSION
     Dosage: 300 MG
     Dates: start: 20030811, end: 20030908
  2. PEPCID [Concomitant]
  3. FLUMADINE [Concomitant]
  4. PRINIVIL [Concomitant]
  5. DECADRON [Concomitant]

REACTIONS (1)
  - STEVENS-JOHNSON SYNDROME [None]
